FAERS Safety Report 17706973 (Version 1)
Quarter: 2020Q2

REPORT INFORMATION
  Report Type: Spontaneous
  Country: US (occurrence: US)
  Receive Date: 20200424
  Receipt Date: 20200424
  Transmission Date: 20200714
  Serious: Yes (Other)
  Sender: FDA-Public Use
  Company Number: US-SUNOVION-2020SUN001237

PATIENT
  Age: 34 Year
  Sex: Male

DRUGS (2)
  1. APTIOM [Suspect]
     Active Substance: ESLICARBAZEPINE ACETATE
     Indication: SEIZURE
     Dosage: 1000 MG (800MG AND 200MG), QD
     Route: 048
     Dates: start: 2016
  2. ZONISAMIDE. [Concomitant]
     Active Substance: ZONISAMIDE

REACTIONS (2)
  - Brain operation [Not Recovered/Not Resolved]
  - Seizure [Unknown]
